FAERS Safety Report 19202539 (Version 3)
Quarter: 2021Q2

REPORT INFORMATION
  Report Type: Spontaneous
  Country: US (occurrence: US)
  Receive Date: 20210502
  Receipt Date: 20210628
  Transmission Date: 20210717
  Serious: Yes (Other)
  Sender: FDA-Public Use
  Company Number: US-ESPERIONTHERAPEUTICS-2021USA00699

PATIENT
  Age: 64 Year
  Sex: Female
  Weight: 94.33 kg

DRUGS (2)
  1. NEXLETOL [Suspect]
     Active Substance: BEMPEDOIC ACID
     Indication: CARDIOVASCULAR DISORDER
  2. NEXLETOL [Suspect]
     Active Substance: BEMPEDOIC ACID
     Indication: HYPERLIPIDAEMIA
     Dosage: UNK
     Route: 065
     Dates: start: 20210105, end: 20210318

REACTIONS (9)
  - Blood glucose increased [Unknown]
  - Acute kidney injury [Recovering/Resolving]
  - Glomerular filtration rate decreased [Recovering/Resolving]
  - Hepatic steatosis [Unknown]
  - Chronic kidney disease [Recovering/Resolving]
  - Oedema peripheral [Recovered/Resolved]
  - Blood creatinine increased [Recovering/Resolving]
  - Blood urea increased [Recovered/Resolved]
  - Peripheral venous disease [Recovered/Resolved]

NARRATIVE: CASE EVENT DATE: 202101
